FAERS Safety Report 24537887 (Version 1)
Quarter: 2024Q4

REPORT INFORMATION
  Report Type: Spontaneous
  Country: US (occurrence: US)
  Receive Date: 20241023
  Receipt Date: 20241023
  Transmission Date: 20250114
  Serious: No
  Sender: ABBVIE
  Company Number: US-ABBVIE-5973812

PATIENT

DRUGS (2)
  1. CYCLOSPORINE [Suspect]
     Active Substance: CYCLOSPORINE
     Indication: Product used for unknown indication
     Dosage: OPHTHALMIC EMULSION?FORM STRENGTH 0.05%?IN BOTH EYES, SECOND BOX
     Route: 047
     Dates: start: 202410
  2. CYCLOSPORINE [Suspect]
     Active Substance: CYCLOSPORINE
     Dosage: FIRST BOX
     Route: 047

REACTIONS (2)
  - Rash [Unknown]
  - Eye irritation [Unknown]

NARRATIVE: CASE EVENT DATE: 20241001
